FAERS Safety Report 6479923-8 (Version None)
Quarter: 2009Q4

REPORT INFORMATION
  Report Type: 
  Country: None (occurrence: None)
  Receive Date: 20091208
  Receipt Date: 20091123
  Transmission Date: 20100525
  Serious: Yes (Disabling)
  Sender: FDA-Public Use
  Company Number: AU-SANOFI-AVENTIS-2009SA001783

PATIENT
  Age: 62 Year
  Sex: Female
  Weight: 85 kg

DRUGS (7)
  1. TAXOTERE [Suspect]
     Indication: BREAST CANCER
     Route: 065
  2. FLUOROURACIL [Concomitant]
  3. EPIRUBICIN [Concomitant]
  4. CYCLOPHOSPHAMIDE [Concomitant]
  5. AVAPRO [Concomitant]
     Indication: HYPERTENSION
     Route: 048
     Dates: start: 20050101
  6. ZANIDIP [Concomitant]
     Route: 048
     Dates: start: 20060101
  7. SINEMET [Concomitant]
     Route: 048
     Dates: start: 20050101

REACTIONS (5)
  - BLISTER [None]
  - BURNING SENSATION [None]
  - OEDEMA [None]
  - ONYCHOLYSIS [None]
  - SOMNOLENCE [None]
